FAERS Safety Report 25056618 (Version 2)
Quarter: 2025Q2

REPORT INFORMATION
  Report Type: Spontaneous
  Country: US (occurrence: US)
  Receive Date: 20250310
  Receipt Date: 20250403
  Transmission Date: 20250717
  Serious: No
  Sender: BAUSCH AND LOMB
  Company Number: US-BAUSCHBL-2025BNL003691

PATIENT
  Sex: Female

DRUGS (1)
  1. XIIDRA [Suspect]
     Active Substance: LIFITEGRAST
     Indication: Product used for unknown indication
     Route: 065

REACTIONS (5)
  - Arthritis [Unknown]
  - Condition aggravated [Unknown]
  - Insomnia [Unknown]
  - Product use complaint [Unknown]
  - Product container issue [Unknown]
